FAERS Safety Report 9016779 (Version 4)
Quarter: 2014Q3

REPORT INFORMATION
  Report Type: Spontaneous
  Country: US (occurrence: US)
  Receive Date: 20130116
  Receipt Date: 20140708
  Transmission Date: 20150326
  Serious: Yes (Hospitalization, Disabling, Other)
  Sender: FDA-Public Use
  Company Number: US-009507513-1301USA005104

PATIENT
  Sex: Female
  Weight: 86.17 kg

DRUGS (1)
  1. NUVARING [Suspect]
     Active Substance: ETHINYL ESTRADIOL\ETONOGESTREL
     Indication: CONTRACEPTION
     Dosage: UNK
     Route: 067
     Dates: start: 20070616, end: 20100820

REACTIONS (17)
  - Depression [Unknown]
  - Drug abuse [Unknown]
  - Coagulopathy [Unknown]
  - Rash [Unknown]
  - Oedema peripheral [Unknown]
  - Dyslipidaemia [Unknown]
  - Peripheral coldness [Recovered/Resolved]
  - Abortion [Unknown]
  - Cerebrovascular accident [Unknown]
  - Migraine [Unknown]
  - Maternal exposure before pregnancy [Unknown]
  - Wheezing [Unknown]
  - Hyponatraemia [Recovered/Resolved]
  - Dysmenorrhoea [Unknown]
  - Blood osmolarity decreased [Unknown]
  - Loop electrosurgical excision procedure [Unknown]
  - Back pain [Unknown]

NARRATIVE: CASE EVENT DATE: 2009
